FAERS Safety Report 10155872 (Version 2)
Quarter: 2014Q2

REPORT INFORMATION
  Report Type: Spontaneous
  Country: GB (occurrence: GB)
  Receive Date: 20140506
  Receipt Date: 20140603
  Transmission Date: 20141212
  Serious: Yes (Congenital Anomaly)
  Sender: FDA-Public Use
  Company Number: GB-WATSON-2014-08912

PATIENT
  Sex: 0

DRUGS (2)
  1. CITALOPRAM (UNKNOWN) [Suspect]
     Indication: AFFECTIVE DISORDER
     Dosage: UNK
     Route: 064
  2. ZOLPIDEM [Concomitant]
     Indication: PRODUCT USED FOR UNKNOWN INDICATION
     Dosage: UNK
     Route: 065

REACTIONS (3)
  - Congenital pulmonary valve atresia [Not Recovered/Not Resolved]
  - Cardiac septal defect [Not Recovered/Not Resolved]
  - Congenital aortic atresia [Not Recovered/Not Resolved]
